FAERS Safety Report 5701513-2 (Version None)
Quarter: 2008Q2

REPORT INFORMATION
  Report Type: 
  Country: None (occurrence: None)
  Receive Date: 20080408
  Receipt Date: 20080331
  Transmission Date: 20081010
  Serious: No
  Sender: FDA-Public Use
  Company Number: TPA2007A00356

PATIENT
  Age: 57 Year
  Sex: Male
  Weight: 99.7913 kg

DRUGS (8)
  1. ROZEREM [Suspect]
     Indication: INITIAL INSOMNIA
     Dosage: 8 MG, HS, PER ORAL
     Route: 048
     Dates: start: 20071101
  2. ROZEREM [Suspect]
     Indication: MIDDLE INSOMNIA
     Dosage: 8 MG, HS, PER ORAL
     Route: 048
     Dates: start: 20071101
  3. DIGOXIN [Concomitant]
  4. COREG [Concomitant]
  5. ENALAPRIL MALEATE [Concomitant]
  6. UNKNOWN OTC SLEEP AID (ALL OTHER THERAPEUTIC PRODUCTS) [Concomitant]
  7. FUROSEMIDE [Concomitant]
  8. ACIPHEX [Concomitant]

REACTIONS (4)
  - DRUG INEFFECTIVE [None]
  - INCORRECT DOSE ADMINISTERED [None]
  - MIDDLE INSOMNIA [None]
  - TREATMENT NONCOMPLIANCE [None]
